FAERS Safety Report 8119365-2 (Version None)
Quarter: 2012Q1

REPORT INFORMATION
  Report Type: 
  Country: None (occurrence: None)
  Receive Date: 20120207
  Receipt Date: 20120201
  Transmission Date: 20120608
  Serious: Yes (Other)
  Sender: FDA-Public Use
  Company Number: CN-JNJFOC-20120201959

PATIENT
  Age: 64 Year
  Sex: Female

DRUGS (3)
  1. BENZHEXOL HYDROCHLORIDE [Concomitant]
     Indication: PRODUCT USED FOR UNKNOWN INDICATION
     Route: 048
  2. RISPERDAL [Suspect]
     Route: 048
     Dates: start: 20060315
  3. RISPERDAL [Suspect]
     Indication: SCHIZOPHRENIA
     Route: 048
     Dates: end: 20120123

REACTIONS (3)
  - MEMORY IMPAIRMENT [None]
  - CEREBRAL INFARCTION [None]
  - TREATMENT NONCOMPLIANCE [None]
